FAERS Safety Report 19066567 (Version 1)
Quarter: 2021Q1

REPORT INFORMATION
  Report Type: Spontaneous
  Country: US (occurrence: US)
  Receive Date: 20210328
  Receipt Date: 20210328
  Transmission Date: 20210420
  Serious: Yes (Life-Threatening, Hospitalization)
  Sender: FDA-Public Use
  Company Number: US-TEVA-2021-US-1893763

PATIENT
  Age: 17 Year
  Sex: Male

DRUGS (2)
  1. TOPIRAMATE. [Concomitant]
     Active Substance: TOPIRAMATE
     Indication: PRODUCT USED FOR UNKNOWN INDICATION
     Dosage: 100MG
     Route: 065
  2. GUANFACINE. [Suspect]
     Active Substance: GUANFACINE
     Indication: ATTENTION DEFICIT HYPERACTIVITY DISORDER
     Dosage: FORMULATION : EXTENDED RELEASE, 80MG
     Route: 048

REACTIONS (5)
  - Accidental overdose [Unknown]
  - Pulmonary oedema [Recovering/Resolving]
  - Toxicity to various agents [Unknown]
  - Cardiac failure [Recovered/Resolved]
  - Sinus bradycardia [Unknown]
